FAERS Safety Report 11284463 (Version 1)
Quarter: 2015Q3

REPORT INFORMATION
  Report Type: Spontaneous
  Country: JP (occurrence: JP)
  Receive Date: 20150720
  Receipt Date: 20150720
  Transmission Date: 20151125
  Serious: Yes (Other)
  Sender: FDA-Public Use
  Company Number: JP-ASTRAZENECA-2015SE70052

PATIENT
  Age: 46 Year
  Sex: Female

DRUGS (1)
  1. SEROQUEL [Suspect]
     Active Substance: QUETIAPINE FUMARATE
     Indication: SCHIZOPHRENIA
     Route: 048
     Dates: start: 20140407, end: 20150714

REACTIONS (1)
  - Diabetes mellitus [Unknown]

NARRATIVE: CASE EVENT DATE: 20150706
